FAERS Safety Report 15988241 (Version 2)
Quarter: 2022Q1

REPORT INFORMATION
  Report Type: Spontaneous
  Country: CA (occurrence: CA)
  Receive Date: 20190221
  Receipt Date: 20220204
  Transmission Date: 20220423
  Serious: Yes (Other)
  Sender: FDA-Public Use
  Company Number: CA-JNJFOC-20190215581

PATIENT
  Age: 40 Year
  Sex: Male

DRUGS (2)
  1. TYLENOL EXTRA STRENGTH [Suspect]
     Active Substance: ACETAMINOPHEN
     Indication: Pyrexia
     Route: 048
     Dates: start: 19930628, end: 19930629
  2. TYLENOL EXTRA STRENGTH [Suspect]
     Active Substance: ACETAMINOPHEN
     Indication: Hyperhidrosis

REACTIONS (8)
  - Arthralgia [Recovered/Resolved]
  - Rash maculo-papular [Recovered/Resolved]
  - Complement factor C3 increased [Recovered/Resolved]
  - Pain [Recovered/Resolved]
  - Serum sickness [Recovered/Resolved]
  - Hypophosphataemia [Recovered/Resolved]
  - Blood glucose increased [Recovered/Resolved]
  - Immunoglobulins increased [Recovered/Resolved]

NARRATIVE: CASE EVENT DATE: 19930703
